APPROVED DRUG PRODUCT: ICOSAPENT ETHYL
Active Ingredient: ICOSAPENT ETHYL
Strength: 1GM
Dosage Form/Route: CAPSULE;ORAL
Application: A216811 | Product #002 | TE Code: AB
Applicant: ASCENT PHARMACEUTICALS INC
Approved: Feb 16, 2024 | RLD: No | RS: No | Type: RX